FAERS Safety Report 4976840-7 (Version None)
Quarter: 2006Q2

REPORT INFORMATION
  Report Type: 
  Country: None (occurrence: None)
  Receive Date: 20060413
  Receipt Date: 20060405
  Transmission Date: 20061013
  Serious: Yes (Disabling, Other)
  Sender: FDA-Public Use
  Company Number: 2006035915

PATIENT
  Age: 49 Year
  Sex: Female
  Weight: 63.5036 kg

DRUGS (4)
  1. ZYRTEC [Suspect]
     Indication: IDIOPATHIC URTICARIA
     Dosage: SEE IMAGE
     Route: 048
     Dates: start: 19950101
  2. PRILOSEC [Concomitant]
  3. TOPROL-XL [Concomitant]
  4. EFFEXOR [Concomitant]

REACTIONS (1)
  - ROAD TRAFFIC ACCIDENT [None]
